FAERS Safety Report 14196077 (Version 1)
Quarter: 2017Q4

REPORT INFORMATION
  Report Type: Spontaneous
  Country: US (occurrence: None)
  Receive Date: 20171116
  Receipt Date: 20171116
  Transmission Date: 20180321
  Serious: Yes (Life-Threatening, Disabling, Other)
  Sender: FDA-Public Use
  Company Number: None

PATIENT
  Age: 63 Year
  Sex: Female
  Weight: 72.57 kg

DRUGS (10)
  1. HYPERTONIC SALINE [Concomitant]
     Active Substance: SODIUM CHLORIDE
  2. ACETYLCYSTINE [Concomitant]
  3. OSCILLATING POSITIVE EXPIRATORY PRESSURE THERAPY SYSTEM [Concomitant]
  4. VEST AIRWAY CLEARANCE SYSTEM [Concomitant]
  5. AERO ECLIPSE XL BAN BREATH ACTIVATED DELIVERY [Concomitant]
  6. OMNISCAN [Suspect]
     Active Substance: GADODIAMIDE
     Indication: NUCLEAR MAGNETIC RESONANCE IMAGING
     Dates: start: 2008
  7. REVITIVE CIRCULATION BOOSTER [Concomitant]
  8. OXYGEN. [Concomitant]
     Active Substance: OXYGEN
  9. TENS UNIT [Concomitant]
  10. LEVABUTEROL [Concomitant]

REACTIONS (7)
  - Arthralgia [None]
  - Nephrogenic systemic fibrosis [None]
  - Adrenal insufficiency [None]
  - Nervous system disorder [None]
  - Swelling [None]
  - Musculoskeletal disorder [None]
  - Skin disorder [None]

NARRATIVE: CASE EVENT DATE: 2008
